FAERS Safety Report 16648592 (Version 1)
Quarter: 2019Q3

REPORT INFORMATION
  Report Type: Report from Study
  Country: CA (occurrence: CA)
  Receive Date: 20190730
  Receipt Date: 20190730
  Transmission Date: 20191004
  Serious: Yes (Other)
  Sender: FDA-Public Use
  Company Number: CA-GLAXOSMITHKLINE-CA2019GSK102648

PATIENT
  Sex: Male

DRUGS (2)
  1. PREDNISONE. [Suspect]
     Active Substance: PREDNISONE
     Indication: PRODUCT USED FOR UNKNOWN INDICATION
     Dosage: UNK
     Dates: start: 20190523
  2. MEPOLIZUMAB [Suspect]
     Active Substance: MEPOLIZUMAB
     Indication: ASTHMA
     Dosage: 100 MG, Z (ONE MONTH)
     Route: 042
     Dates: start: 20181113

REACTIONS (7)
  - Loss of personal independence in daily activities [Unknown]
  - Productive cough [Unknown]
  - Asthma [Unknown]
  - Infection [Recovering/Resolving]
  - Bronchitis [Unknown]
  - Lung infection [Unknown]
  - Dyspnoea [Unknown]
